FAERS Safety Report 8619470-8 (Version None)
Quarter: 2012Q3

REPORT INFORMATION
  Report Type: 
  Country: None (occurrence: None)
  Receive Date: 20120824
  Receipt Date: 20120822
  Transmission Date: 20120928
  Serious: Yes (Hospitalization)
  Sender: FDA-Public Use
  Company Number: JP-PFIZER INC-2012128375

PATIENT
  Age: 78 Year
  Sex: Male
  Weight: 63.35 kg

DRUGS (6)
  1. SUTENT [Suspect]
     Indication: RENAL CANCER
     Dosage: 37.5 MG, 1X/DAY
     Route: 048
     Dates: start: 20120508, end: 20120523
  2. MAGMITT [Concomitant]
     Dosage: 330 MG, 3X/DAY
  3. GOREI-SAN [Concomitant]
     Dosage: 2.5 G, 3X/DAY
  4. FAMOTIDINE [Concomitant]
     Dosage: 20 MG, 2X/DAY
  5. DEPAKENE [Concomitant]
     Dosage: 600 MG, 2X/DAY
  6. TAMSULOSIN HCL [Concomitant]
     Dosage: 0.2 MG, 1X/DAY

REACTIONS (2)
  - PLATELET COUNT DECREASED [None]
  - ERYTHEMA MULTIFORME [None]
